FAERS Safety Report 18200568 (Version 1)
Quarter: 2020Q3

REPORT INFORMATION
  Report Type: Spontaneous
  Country: US (occurrence: US)
  Receive Date: 20200826
  Receipt Date: 20200826
  Transmission Date: 20201103
  Serious: Yes (Hospitalization)
  Sender: FDA-Public Use
  Company Number: US-JAZZ-2020-US-010859

PATIENT
  Sex: Female

DRUGS (2)
  1. XYREM [Suspect]
     Active Substance: SODIUM OXYBATE
     Indication: NARCOLEPSY
     Dosage: UNKNOWN DOSE AND DURATION
     Route: 048
     Dates: start: 2019
  2. XYREM [Suspect]
     Active Substance: SODIUM OXYBATE
     Dosage: 4.5 GRAM, BID
     Route: 048

REACTIONS (4)
  - Concussion [Unknown]
  - Ligament rupture [Unknown]
  - Hypopnoea [Unknown]
  - Skin discolouration [Unknown]

NARRATIVE: CASE EVENT DATE: 2020
